FAERS Safety Report 7322386-0 (Version None)
Quarter: 2011Q1

REPORT INFORMATION
  Report Type: 
  Country: None (occurrence: None)
  Receive Date: 20110301
  Receipt Date: 20110225
  Transmission Date: 20110831
  Serious: Yes (Hospitalization)
  Sender: FDA-Public Use
  Company Number: US-BIOGENIDEC-2011BI006915

PATIENT
  Sex: Female

DRUGS (4)
  1. TYSABRI [Suspect]
     Indication: BONE MARROW FAILURE
     Route: 042
     Dates: start: 20080725
  2. TYSABRI [Suspect]
     Indication: VASCULITIS
     Route: 042
     Dates: start: 20080725
  3. TYSABRI [Suspect]
     Indication: IMMUNE SYSTEM DISORDER
     Route: 042
     Dates: start: 20080725
  4. TYSABRI [Suspect]
     Indication: LUNG INFILTRATION
     Route: 042
     Dates: start: 20080725

REACTIONS (2)
  - HEADACHE [None]
  - PYREXIA [None]
